FAERS Safety Report 5502089-5 (Version None)
Quarter: 2007Q4

REPORT INFORMATION
  Report Type: 
  Country: None (occurrence: None)
  Receive Date: 20071019
  Receipt Date: 20060914
  Transmission Date: 20080405
  Serious: Yes (Hospitalization)
  Sender: FDA-Public Use
  Company Number: PHEH2006US11781

PATIENT
  Age: 80 Year
  Sex: Female

DRUGS (5)
  1. ZOMETA [Suspect]
     Indication: BREAST CANCER METASTATIC
     Dosage: 4MG ONCE
     Dates: start: 20060809
  2. CALCIUM (CALCIUM) [Concomitant]
  3. ARIMIDEX [Concomitant]
  4. ATENOLOL [Concomitant]
  5. TRAMADOL HCL [Concomitant]

REACTIONS (6)
  - ABDOMINAL PAIN LOWER [None]
  - DEHYDRATION [None]
  - DIARRHOEA [None]
  - INFLUENZA LIKE ILLNESS [None]
  - NAUSEA [None]
  - VOMITING [None]
